FAERS Safety Report 23146059 (Version 1)
Quarter: 2023Q4

REPORT INFORMATION
  Report Type: Other
  Country: GB (occurrence: GB)
  Receive Date: 20231104
  Receipt Date: 20231104
  Transmission Date: 20240110
  Serious: Yes (Hospitalization)
  Sender: FDA-Public Use
  Company Number: GB-MACLEODS PHARMACEUTICALS US LTD-MAC2023044097

PATIENT

DRUGS (5)
  1. ARIPIPRAZOLE [Suspect]
     Active Substance: ARIPIPRAZOLE
     Indication: Mania
     Dosage: 15 MILLIGRAM, QD, IN THE MORNING, TABLETS
     Route: 065
     Dates: start: 20230818, end: 20230913
  2. ARIPIPRAZOLE [Suspect]
     Active Substance: ARIPIPRAZOLE
     Dosage: 20 MILLIGRAM, QD, ORODISPERSIBLE
     Route: 065
     Dates: start: 20230905, end: 20230913
  3. ARIPIPRAZOLE [Suspect]
     Active Substance: ARIPIPRAZOLE
     Dosage: 25 MILLIGRAM, QD, ORODISPERSIBLE
     Route: 065
     Dates: start: 20230906, end: 20230913
  4. HALOPERIDOL [Concomitant]
     Active Substance: HALOPERIDOL
     Indication: Agitation
     Dosage: UNK
     Route: 065
     Dates: start: 20230819
  5. LORAZEPAM [Concomitant]
     Active Substance: LORAZEPAM
     Indication: Agitation
     Dosage: UNK
     Route: 065
     Dates: start: 20230816

REACTIONS (1)
  - Mental impairment [Recovering/Resolving]

NARRATIVE: CASE EVENT DATE: 20230904
